FAERS Safety Report 13054875 (Version 1)
Quarter: 2016Q4

REPORT INFORMATION
  Report Type: Spontaneous
  Country: US (occurrence: US)
  Receive Date: 20161222
  Receipt Date: 20161222
  Transmission Date: 20170207
  Serious: No
  Sender: FDA-Public Use
  Company Number: US-PFIZER INC-2016542838

PATIENT
  Age: 50 Year
  Sex: Female
  Weight: 89.81 kg

DRUGS (28)
  1. PROVENTIL HFA [Concomitant]
     Active Substance: ALBUTEROL SULFATE
     Dosage: 2 DF, AS NEEDED (2 PUFFS EVERY 4 HOURS (FOUR)) [90 MCG/ACTUATION]
     Route: 055
  2. CLOBETASOL PROPIONATE. [Concomitant]
     Active Substance: CLOBETASOL PROPIONATE
     Dosage: UNK UNK, AS NEEDED (APPLY 1 APPLICATION TOPICALLY 2 (TWO) TIMES A DAY)
     Route: 061
  3. FLUCONAZOLE. [Concomitant]
     Active Substance: FLUCONAZOLE
     Dosage: 150 MG, UNK
     Route: 048
  4. FOLIC ACID. [Concomitant]
     Active Substance: FOLIC ACID
     Dosage: 1 MG, DAILY
     Route: 048
  5. MINOCYCLINE [Concomitant]
     Active Substance: MINOCYCLINE\MINOCYCLINE HYDROCHLORIDE
     Dosage: 100 MG, DAILY
  6. NORCO [Concomitant]
     Active Substance: ACETAMINOPHEN\HYDROCODONE BITARTRATE
     Indication: BACK INJURY
     Dosage: UNK UNK, AS NEEDED [HYDROCODONE BITARTRATE 10 MG] / [PARACETAMOL 325 MG], FOUR A DAY
  7. ASPIRIN. [Concomitant]
     Active Substance: ASPIRIN
     Dosage: 81 MG, DAILY
     Route: 048
  8. CALCIUM CITRATE WITH VITAMIN D3 [Concomitant]
     Dosage: 1 DF, DAILY [CALCIUM CITRATE 315 MG] / [VITAMIN D3 200 UNIT]
     Route: 048
  9. CLONIDINE. [Concomitant]
     Active Substance: CLONIDINE
     Indication: ANXIETY
     Dosage: 0.1 MG, AS NEEDED (4 (FOUR) TIMES A DAY)
     Route: 048
  10. VITAMIN B12 [Concomitant]
     Active Substance: CYANOCOBALAMIN
     Dosage: 1000 UG, UNK (AS DIRECTED EVERY 28 DAYS)
  11. LINACLOTIDE [Concomitant]
     Active Substance: LINACLOTIDE
     Dosage: 290 UG, DAILY
     Route: 048
  12. GABAPENTIN. [Concomitant]
     Active Substance: GABAPENTIN
     Dosage: 400 MG, 3X/DAY
     Route: 048
  13. VILAZODONE [Concomitant]
     Active Substance: VILAZODONE
     Dosage: 20 MG, DAILY
     Route: 048
  14. ALPRAZOLAM. [Concomitant]
     Active Substance: ALPRAZOLAM
     Dosage: 2 MG, AS NEEDED (4 (FOUR) TIMES A DAY)
     Route: 048
  15. HYDROCHLOROTHIAZIDE. [Concomitant]
     Active Substance: HYDROCHLOROTHIAZIDE
     Dosage: 50 MG, 1X/DAY
  16. HYDROCODONE BITARTRATE AND ACETAMINOPHEN [Concomitant]
     Active Substance: ACETAMINOPHEN\HYDROCODONE BITARTRATE
     Dosage: 1 DF, 4X/DAY [HYDROCODONE 10 MG] / [ACETAMINOPHEN 325 MG]
     Route: 048
  17. BENZPHETAMINE [Concomitant]
     Active Substance: BENZPHETAMINE HYDROCHLORIDE
     Dosage: 50 MG, 2X/DAY
     Route: 048
  18. BIOTIN [Concomitant]
     Active Substance: BIOTIN
     Dosage: 5 MG, UNK
  19. CLONIDINE. [Concomitant]
     Active Substance: CLONIDINE
     Indication: BLOOD PRESSURE INCREASED
  20. DIVALPROEX SODIUM. [Concomitant]
     Active Substance: DIVALPROEX SODIUM
     Dosage: 250 MG, 2X/DAY
     Route: 048
  21. EEMT [Concomitant]
     Active Substance: ESTROGENS, ESTERIFIED\METHYLTESTOSTERONE
     Dosage: 1 DF, 1X/DAY [ESTERIFIED ESTROGENS 0.625MG] \ [METHYLTESTOSTERONE 1.25 MG]
     Route: 048
  22. HYDROCORTISONE. [Concomitant]
     Active Substance: HYDROCORTISONE
     Dosage: UNK (APPLY 1 APPLICATION)
     Route: 061
  23. MUPIROCIN. [Concomitant]
     Active Substance: MUPIROCIN
     Dosage: UNK UNK, AS NEEDED (APPLY 1 APPLICATION; 2 (TWO) TIMES A DAY)
     Route: 061
  24. LYRICA [Suspect]
     Active Substance: PREGABALIN
     Indication: NEUROPATHY PERIPHERAL
     Dosage: 100 MG, 3X/DAY
     Route: 048
     Dates: start: 201607
  25. ACCUPRIL [Concomitant]
     Active Substance: QUINAPRIL HYDROCHLORIDE
     Indication: HYPERTENSION
     Dosage: UNK (20MG IN THE MORNING, 20MG AT LUNCH IF NEEDED, AND 40MG AT NIGHT)
  26. GLYCOPYRROLATE. [Concomitant]
     Active Substance: GLYCOPYRROLATE
     Dosage: 2 MG, 2X/DAY
  27. LYRICA [Suspect]
     Active Substance: PREGABALIN
     Indication: MUSCLE SPASMS
  28. HYDROCHLOROTHIAZIDE. [Concomitant]
     Active Substance: HYDROCHLOROTHIAZIDE
     Indication: HYPERTENSION
     Dosage: 50 MG, DAILY
     Route: 048

REACTIONS (6)
  - Malaise [Recovering/Resolving]
  - Condition aggravated [Unknown]
  - Nasal congestion [Recovering/Resolving]
  - Dehydration [Unknown]
  - Nasopharyngitis [Recovering/Resolving]
  - Muscle spasms [Not Recovered/Not Resolved]

NARRATIVE: CASE EVENT DATE: 201611
